FAERS Safety Report 7304259-2 (Version None)
Quarter: 2011Q1

REPORT INFORMATION
  Report Type: 
  Country: None (occurrence: None)
  Receive Date: 20110221
  Receipt Date: 20110208
  Transmission Date: 20110831
  Serious: Yes (Other)
  Sender: FDA-Public Use
  Company Number: PHHY2011FR03775

PATIENT
  Sex: Female
  Weight: 65 kg

DRUGS (4)
  1. RASILEZ [Suspect]
     Indication: HYPERTENSION
     Dosage: 1 DF, DAILY
     Route: 048
     Dates: start: 20100915, end: 20110115
  2. BETA BLOCKING AGENTS [Concomitant]
  3. RASILEZ [Suspect]
     Route: 048
     Dates: start: 20110121
  4. HYPERIUM [Concomitant]
     Indication: HYPERTENSION

REACTIONS (3)
  - COUGH [None]
  - VIRAL INFECTION [None]
  - BRONCHIAL HYPERREACTIVITY [None]
